FAERS Safety Report 5122581-5 (Version None)
Quarter: 2006Q4

REPORT INFORMATION
  Report Type: 
  Country: None (occurrence: None)
  Receive Date: 20061004
  Receipt Date: 20060919
  Transmission Date: 20070319
  Serious: Yes (Other)
  Sender: FDA-Public Use
  Company Number: SE-2006-028175

PATIENT
  Sex: Female

DRUGS (1)
  1. BETAFERON (INTERFERON BETA - 1B) INJECTION, 250?G [Suspect]
     Indication: DRUG USE FOR UNKNOWN INDICATION
     Dosage: 250 UG, E.O.D.
     Dates: start: 20060101

REACTIONS (5)
  - CONJUNCTIVITIS [None]
  - INSOMNIA [None]
  - MEMORY IMPAIRMENT [None]
  - MENORRHAGIA [None]
  - SLEEP DISORDER [None]
